FAERS Safety Report 24864634 (Version 2)
Quarter: 2025Q3

REPORT INFORMATION
  Report Type: Spontaneous
  Country: EU (occurrence: EU)
  Receive Date: 20250120
  Receipt Date: 20250929
  Transmission Date: 20251021
  Serious: Yes (Hospitalization)
  Sender: ACCORD
  Company Number: None

PATIENT
  Age: 61 Year
  Sex: Female
  Weight: 74 kg

DRUGS (19)
  1. IRINOTECAN [Suspect]
     Active Substance: IRINOTECAN
     Indication: Pancreatic carcinoma
     Dates: start: 20241023, end: 20241023
  2. FLUOROURACIL [Suspect]
     Active Substance: FLUOROURACIL
     Indication: Pancreatic carcinoma
     Dates: start: 20241023, end: 20241023
  3. SULFAMETHOXAZOLE [Concomitant]
     Active Substance: SULFAMETHOXAZOLE
  4. TRIMETHOPRIM [Concomitant]
     Active Substance: TRIMETHOPRIM
  5. ESOMEPRAZOLE [Concomitant]
     Active Substance: ESOMEPRAZOLE
  6. EZETIMIBE [Concomitant]
     Active Substance: EZETIMIBE
  7. VILDAGLIPTIN [Concomitant]
     Active Substance: VILDAGLIPTIN
  8. LEVOTHYROXINE [Concomitant]
     Active Substance: LEVOTHYROXINE
  9. HUMALOG [Concomitant]
     Active Substance: INSULIN LISPRO
  10. CALCIUM CARBONATE\CHOLECALCIFEROL [Concomitant]
     Active Substance: CALCIUM CARBONATE\CHOLECALCIFEROL
  11. PREDNISOLONE [Concomitant]
     Active Substance: PREDNISOLONE
  12. FOLIC ACID [Concomitant]
     Active Substance: FOLIC ACID
  13. LAMALINE [Concomitant]
  14. URAPIDIL [Concomitant]
     Active Substance: URAPIDIL
  15. ARANESP [Concomitant]
     Active Substance: DARBEPOETIN ALFA
  16. TACROLIMUS [Concomitant]
     Active Substance: TACROLIMUS
  17. INSULIN DEGLUDEC [Concomitant]
     Active Substance: INSULIN DEGLUDEC
  18. ATENOLOL [Concomitant]
     Active Substance: ATENOLOL
  19. DOLIPRANE [Concomitant]
     Active Substance: ACETAMINOPHEN

REACTIONS (1)
  - Toxic encephalopathy [Recovered/Resolved with Sequelae]

NARRATIVE: CASE EVENT DATE: 20241026
